FAERS Safety Report 4428127-9 (Version None)
Quarter: 2004Q3

REPORT INFORMATION
  Report Type: 
  Country: None (occurrence: None)
  Receive Date: 20040726
  Receipt Date: 20040301
  Transmission Date: 20050211
  Serious: No
  Sender: FDA-Public Use
  Company Number: USA031254689

PATIENT
  Age: 44 Year
  Sex: Male
  Weight: 107 kg

DRUGS (5)
  1. FORTEO [Suspect]
     Indication: CONTUSION
     Dosage: 40 UG/5 DAY
     Dates: start: 20031002
  2. FORTEO [Suspect]
     Indication: HYPOPARATHYROIDISM
     Dosage: 40 UG/5 DAY
     Dates: start: 20031002
  3. CALCIUM [Concomitant]
  4. PARATHYROID HORMONE [Concomitant]
  5. CALCIUM, IONIZED [Concomitant]

REACTIONS (3)
  - BLOOD PARATHYROID HORMONE DECREASED [None]
  - INJECTION SITE HAEMORRHAGE [None]
  - PRESCRIBED OVERDOSE [None]
